FAERS Safety Report 11544779 (Version 1)
Quarter: 2015Q3

REPORT INFORMATION
  Report Type: Spontaneous
  Country: FR (occurrence: FR)
  Receive Date: 20150924
  Receipt Date: 20150924
  Transmission Date: 20151125
  Serious: Yes (Hospitalization)
  Sender: FDA-Public Use
  Company Number: FR-ASTRAZENECA-2015SE90541

PATIENT
  Age: 32882 Day
  Sex: Male

DRUGS (10)
  1. AMLOR [Concomitant]
     Active Substance: AMLODIPINE BESYLATE
     Route: 048
  2. INEXIUM [Suspect]
     Active Substance: ESOMEPRAZOLE
     Route: 048
     Dates: start: 20150803, end: 20150820
  3. LASILIX [Concomitant]
     Active Substance: FUROSEMIDE
     Route: 048
  4. NOVOMIX [Concomitant]
     Active Substance: INSULIN ASPART
  5. ATENOLOL. [Concomitant]
     Active Substance: ATENOLOL
     Route: 048
  6. APROVEL [Concomitant]
     Active Substance: IRBESARTAN
     Route: 048
  7. KARDEGIC [Concomitant]
     Active Substance: ASPIRIN LYSINE
     Route: 048
  8. LEVOTHYROX [Concomitant]
     Active Substance: LEVOTHYROXINE
  9. PANTOPRAZOLE [Concomitant]
     Active Substance: PANTOPRAZOLE SODIUM
  10. INEGY [Concomitant]
     Active Substance: EZETIMIBE\SIMVASTATIN
     Dosage: 10/20 MG
     Route: 048

REACTIONS (1)
  - Hypersensitivity vasculitis [Recovered/Resolved]

NARRATIVE: CASE EVENT DATE: 20150817
